FAERS Safety Report 7933992-4 (Version None)
Quarter: 2011Q4

REPORT INFORMATION
  Report Type: 
  Country: None (occurrence: None)
  Receive Date: 20111116
  Receipt Date: 20111104
  Transmission Date: 20120403
  Serious: Yes (Hospitalization)
  Sender: FDA-Public Use
  Company Number: B0762260A

PATIENT
  Age: 59 Year
  Sex: Female

DRUGS (3)
  1. LAPATINIB [Suspect]
     Indication: COLORECTAL CANCER METASTATIC
  2. CAPECITABINE (FORMULATION UNKNOWN) (CAPECITABINE) [Suspect]
     Indication: COLORECTAL CANCER METASTATIC
  3. OXALIPLATIN (FORMULATION UNKNOWN) (OXALIPLATIN) [Suspect]
     Indication: COLORECTAL CANCER METASTATIC
     Dosage: 130 MG/M2/CYCLIC/INTRAVENOUS
     Route: 042

REACTIONS (4)
  - DIARRHOEA [None]
  - NEUROPATHY PERIPHERAL [None]
  - VOMITING [None]
  - NAUSEA [None]
